FAERS Safety Report 23060268 (Version 7)
Quarter: 2023Q4

REPORT INFORMATION
  Report Type: Other
  Country: CA (occurrence: None)
  Receive Date: 20231012
  Receipt Date: 20231127
  Transmission Date: 20240109
  Serious: Yes (Hospitalization)
  Sender: FDA-Public Use
  Company Number: CA-ROCHE-3433296

PATIENT
  Age: 75 Year
  Sex: Female

DRUGS (8)
  1. ACTEMRA [Suspect]
     Active Substance: TOCILIZUMAB
     Indication: Giant cell arteritis
     Route: 058
     Dates: start: 20230928, end: 20230928
  2. ACTEMRA [Suspect]
     Active Substance: TOCILIZUMAB
     Route: 058
     Dates: start: 20231023
  3. CORTISONE [Suspect]
     Active Substance: CORTISONE
     Indication: Product used for unknown indication
     Route: 065
  4. SYNTHROID [Concomitant]
     Active Substance: LEVOTHYROXINE SODIUM
  5. BISOPROLOL FUMARATE [Concomitant]
     Active Substance: BISOPROLOL FUMARATE
     Dosage: A QUARTER TABLET DAILY TO REGULATE HER HEART RATE AND TACHYCARDIA
  6. ALENDRONATE [Concomitant]
     Active Substance: ALENDRONATE SODIUM
  7. LORAZEPAM [Concomitant]
     Active Substance: LORAZEPAM
  8. CHOLECALCIFEROL [Concomitant]
     Active Substance: CHOLECALCIFEROL

REACTIONS (13)
  - Syncope [Unknown]
  - Asthenia [Unknown]
  - Depressed level of consciousness [Unknown]
  - Ill-defined disorder [Unknown]
  - Off label use [Unknown]
  - Anxiety [Unknown]
  - Tachycardia [Unknown]
  - Fatigue [Unknown]
  - Insomnia [Unknown]
  - Malaise [Recovered/Resolved with Sequelae]
  - Atrial fibrillation [Unknown]
  - Nausea [Unknown]
  - Diarrhoea [Not Recovered/Not Resolved]

NARRATIVE: CASE EVENT DATE: 20230929
